FAERS Safety Report 17593291 (Version 2)
Quarter: 2020Q2

REPORT INFORMATION
  Report Type: Spontaneous
  Country: CH (occurrence: CH)
  Receive Date: 20200327
  Receipt Date: 20200423
  Transmission Date: 20200713
  Serious: Yes (Other)
  Sender: FDA-Public Use
  Company Number: CH-SHIRE-CH202010753

PATIENT

DRUGS (1)
  1. REVESTIVE [Suspect]
     Active Substance: TEDUGLUTIDE
     Indication: PRODUCT USED FOR UNKNOWN INDICATION
     Dosage: 0.265 MILLILITER, 1X/DAY:QD
     Route: 065
     Dates: start: 20200301, end: 20200320

REACTIONS (2)
  - Therapy cessation [Unknown]
  - Coronavirus test positive [Unknown]
